FAERS Safety Report 10043703 (Version 1)
Quarter: 2014Q1

REPORT INFORMATION
  Report Type: Spontaneous
  Country: US (occurrence: None)
  Receive Date: 20140327
  Receipt Date: 20140327
  Transmission Date: 20141002
  Serious: Yes (Other)
  Sender: FDA-Public Use
  Company Number: None

PATIENT
  Age: 71 Year
  Sex: Male

DRUGS (1)
  1. TASIGNA 150MG NOVARTIS [Suspect]
     Route: 048
     Dates: start: 20140207

REACTIONS (4)
  - Rash [None]
  - Abdominal pain [None]
  - Alanine aminotransferase increased [None]
  - Weight decreased [None]
